FAERS Safety Report 4289989-1 (Version None)
Quarter: 2004Q1

REPORT INFORMATION
  Report Type: 
  Country: None (occurrence: None)
  Receive Date: 20040206
  Receipt Date: 20040130
  Transmission Date: 20041129
  Serious: Yes (Life-Threatening, Hospitalization)
  Sender: FDA-Public Use
  Company Number: 2004PK00208

PATIENT
  Age: 47 Year
  Sex: Male
  Weight: 84 kg

DRUGS (6)
  1. NEXIUM [Suspect]
     Dosage: 20 MG DAILY
     Dates: start: 20030913, end: 20031201
  2. PHENYTOIN [Suspect]
     Indication: NEOPLASM MALIGNANT
     Dosage: 500 MG DAILY PO
     Route: 048
     Dates: start: 20030913, end: 20031201
  3. PREDNISONE [Concomitant]
  4. TEMODAL [Concomitant]
  5. ISCADOR [Concomitant]
  6. ATROVENT [Concomitant]

REACTIONS (4)
  - EXANTHEM [None]
  - GENERAL PHYSICAL HEALTH DETERIORATION [None]
  - STEVENS-JOHNSON SYNDROME [None]
  - TOXIC EPIDERMAL NECROLYSIS [None]
